FAERS Safety Report 13921744 (Version 1)
Quarter: 2017Q3

REPORT INFORMATION
  Report Type: Report from Study
  Country: US (occurrence: US)
  Receive Date: 20170830
  Receipt Date: 20170830
  Transmission Date: 20171127
  Serious: Yes (Death)
  Sender: FDA-Public Use
  Company Number: US-PFIZER INC-2017374428

PATIENT

DRUGS (1)
  1. KETAMINE HCL [Suspect]
     Active Substance: KETAMINE HYDROCHLORIDE
     Indication: EPILEPSY
     Dosage: UNK (MAX 6MG/KG/HR)

REACTIONS (1)
  - Cardiac arrest [Fatal]
